FAERS Safety Report 9525661 (Version 1)
Quarter: 2013Q3

REPORT INFORMATION
  Report Type: Spontaneous
  Country: BR (occurrence: BR)
  Receive Date: 20130915
  Receipt Date: 20130915
  Transmission Date: 20140515
  Serious: Yes (Other)
  Sender: FDA-Public Use
  Company Number: BR-BIOMARINAP-BR-2013-101458

PATIENT
  Age: 36 Year
  Sex: Male

DRUGS (1)
  1. NAGLAZYME [Suspect]
     Indication: MUCOPOLYSACCHARIDOSIS VI

REACTIONS (5)
  - Spinal cord compression [Unknown]
  - Sensory disturbance [Unknown]
  - Muscular weakness [Unknown]
  - Hyperreflexia [Unknown]
  - Reflex test abnormal [Unknown]
